FAERS Safety Report 23741781 (Version 4)
Quarter: 2024Q3

REPORT INFORMATION
  Report Type: Spontaneous
  Country: FR (occurrence: FR)
  Receive Date: 20240415
  Receipt Date: 20240830
  Transmission Date: 20241017
  Serious: Yes (Death, Hospitalization, Other)
  Sender: MYLAN
  Company Number: FR-ABBOTT-11P-056-0695247-00

PATIENT
  Age: 67 Year
  Sex: Male
  Weight: 74 kg

DRUGS (11)
  1. VERAPAMIL HYDROCHLORIDE [Interacting]
     Active Substance: VERAPAMIL HYDROCHLORIDE
     Indication: Hypertension
     Dosage: 240 MILLIGRAM, QD
     Route: 048
     Dates: start: 20100126, end: 20100507
  2. CLARITHROMYCIN [Interacting]
     Active Substance: CLARITHROMYCIN
     Indication: Helicobacter infection
     Dosage: 1 GRAM, QD (1 GRAM DAILY)
     Route: 048
     Dates: start: 20100424, end: 20100501
  3. AMOXICILLIN [Interacting]
     Active Substance: AMOXICILLIN
     Indication: Helicobacter gastritis
     Dosage: 2 GRAM, QD (2 GRAMS DAILY)
     Route: 048
     Dates: start: 20100424, end: 20100501
  4. ACETAMINOPHEN [Suspect]
     Active Substance: ACETAMINOPHEN
     Indication: Product used for unknown indication
     Dosage: 3 GRAM, QD
     Route: 065
  5. COLCHICINE [Interacting]
     Active Substance: COLCHICINE
     Indication: Rheumatoid arthritis
     Dosage: 3 MILLIGRAM, QD (3 MG DAILY)
     Route: 048
     Dates: start: 201002
  6. COLCHICINE [Interacting]
     Active Substance: COLCHICINE
     Indication: Hyperuricaemia
     Dosage: 3 MG/DAY DURING 6 DAYS2 MG/DAY DURING 1 DAY 1 MG/DAY DURING 4 DAYS NUMBER OF SEPARATE DOSAGES: 3
     Route: 048
     Dates: start: 20100423, end: 20100504
  7. IRBESARTAN [Interacting]
     Active Substance: IRBESARTAN
     Indication: Hypertension
     Dosage: 150 MILLIGRAM, QD (150 MG DAILY)
     Route: 048
     Dates: start: 201002
  8. ESOMEPRAZOLE [Interacting]
     Active Substance: ESOMEPRAZOLE
     Indication: Helicobacter infection
     Dosage: 20 MILLIGRAM, BID (40 MG, QD)
     Route: 048
     Dates: start: 20100424, end: 20100430
  9. SIMVASTATIN [Interacting]
     Active Substance: SIMVASTATIN
     Indication: Product used for unknown indication
     Dosage: UNK
     Route: 065
  10. NORFLOXACIN [Interacting]
     Active Substance: NORFLOXACIN
     Indication: Product used for unknown indication
     Dosage: UNK
     Route: 065
  11. SMECTA [Interacting]
     Active Substance: MONTMORILLONITE
     Indication: Product used for unknown indication
     Dosage: UNK
     Route: 065

REACTIONS (7)
  - Neutropenia [Fatal]
  - Shock [Fatal]
  - Cardio-respiratory arrest [Fatal]
  - Aspiration [Fatal]
  - Overdose [Fatal]
  - Drug interaction [Fatal]
  - Thrombocytopenia [Fatal]

NARRATIVE: CASE EVENT DATE: 20100503
